FAERS Safety Report 5895026-5 (Version None)
Quarter: 2008Q3

REPORT INFORMATION
  Report Type: 
  Country: None (occurrence: None)
  Receive Date: 20080924
  Receipt Date: 20080922
  Transmission Date: 20090109
  Serious: No
  Sender: FDA-Public Use
  Company Number: US-BRISTOL-MYERS SQUIBB COMPANY-14248082

PATIENT
  Age: 76 Year
  Sex: Male

DRUGS (6)
  1. ORENCIA [Suspect]
     Indication: RHEUMATOID ARTHRITIS
     Dosage: BEFORE NOV-2007 TREATED FOR}1 YR,HAD 3 TREATMENTS IN 10/2007,FOR PAST 2YRS+LAST DOSE IN MAY-JUN-08.
     Route: 042
     Dates: start: 20060927, end: 20080501
  2. IMURAN [Suspect]
     Indication: RHEUMATOID ARTHRITIS
     Dates: start: 20040601, end: 20080707
  3. PREDNISONE [Concomitant]
  4. ENABLEX [Concomitant]
  5. FOLIC ACID [Concomitant]
  6. LISINOPRIL [Concomitant]

REACTIONS (1)
  - LICHENOID KERATOSIS [None]
